FAERS Safety Report 8219583-9 (Version None)
Quarter: 2012Q1

REPORT INFORMATION
  Report Type: 
  Country: None (occurrence: None)
  Receive Date: 20120319
  Receipt Date: 20120313
  Transmission Date: 20120608
  Serious: Yes (Hospitalization)
  Sender: FDA-Public Use
  Company Number: US-ALLERGAN-1116268US

PATIENT
  Age: 77 Year
  Sex: Male

DRUGS (12)
  1. BOTULINUM TOXIN TYPE A [Suspect]
     Indication: TORTICOLLIS
     Dosage: BILATERAL STERNOCLEIDOMASTOID 125UNITS AND SCALENES 75UNITS
     Route: 030
     Dates: start: 20111202, end: 20111202
  2. LEXAPRO [Concomitant]
  3. BOTULINUM TOXIN TYPE A [Suspect]
     Dosage: UNK
     Dates: start: 20110411, end: 20110411
  4. TRAZODONE HCL [Concomitant]
  5. AMIODARONE HYDROCHLORIDE [Concomitant]
     Dosage: 200 MG, UNK
  6. BOTULINUM TOXIN TYPE A [Suspect]
     Dosage: UNK
     Dates: start: 20110913, end: 20110913
  7. BOTULINUM TOXIN TYPE A [Suspect]
     Dosage: UNK
     Dates: start: 20110609, end: 20110609
  8. COUMADIN [Concomitant]
  9. GABAPENTIN [Concomitant]
     Dosage: 100 MG, UNK
  10. OMEPRAZOLE [Concomitant]
  11. SINEMET [Concomitant]
  12. FLOMAX [Concomitant]

REACTIONS (3)
  - PNEUMONIA ASPIRATION [None]
  - DYSPHAGIA [None]
  - INJECTION SITE SWELLING [None]
